FAERS Safety Report 23361835 (Version 2)
Quarter: 2024Q1

REPORT INFORMATION
  Report Type: Spontaneous
  Country: US (occurrence: US)
  Receive Date: 20240103
  Receipt Date: 20240305
  Transmission Date: 20240410
  Serious: No
  Sender: FDA-Public Use
  Company Number: US-PFIZER INC-202300453841

PATIENT
  Age: 33 Year
  Sex: Male
  Weight: 63.49 kg

DRUGS (23)
  1. PAXLOVID [Suspect]
     Active Substance: NIRMATRELVIR\RITONAVIR
     Indication: COVID-19 treatment
     Dosage: [NIRMATRELVIR 300 MG]/[RITONAVIR 100 MG]; 2X/DAY
     Route: 048
     Dates: start: 20231215, end: 20231220
  2. MINOXIDIL [Concomitant]
     Active Substance: MINOXIDIL
     Indication: Alopecia
     Dosage: UNK
     Route: 048
  3. PROPECIA [Concomitant]
     Active Substance: FINASTERIDE
     Dosage: UNK
  4. LEXAPRO [Concomitant]
     Active Substance: ESCITALOPRAM OXALATE
     Dosage: UNK
  5. MELATONIN [Concomitant]
     Active Substance: MELATONIN
     Dosage: UNK (AS NEEDED)
  6. VITAMIN D3 [Concomitant]
     Active Substance: CHOLECALCIFEROL
     Indication: Vitamin D deficiency
     Dosage: UNK
     Route: 048
     Dates: start: 20231203, end: 20231206
  7. VITAMIN D3 [Concomitant]
     Active Substance: CHOLECALCIFEROL
     Dosage: UNK
     Route: 048
     Dates: start: 20231204, end: 20231206
  8. VITAMIN B12 METHYLCOBALAMIN SUBLINGUAL [Concomitant]
     Dosage: UNK, DAILY
  9. FISH OIL\OMEGA-3 FATTY ACIDS [Concomitant]
     Active Substance: FISH OIL\OMEGA-3 FATTY ACIDS
     Dosage: UNK, DAILY
  10. PROAIR HFA [Concomitant]
     Active Substance: ALBUTEROL SULFATE
     Dosage: UNK
     Dates: start: 20231215
  11. FLOVENT HFA [Concomitant]
     Active Substance: FLUTICASONE PROPIONATE
     Dosage: UNK
     Dates: start: 20231215
  12. ORIGINAL EXTRA STRONG ALL NATURAL FISHERMANS FRIEND MENTHOL COUGH SUPP [Concomitant]
     Active Substance: MENTHOL
     Dosage: UNK
     Dates: start: 20231203
  13. PIROXICAM [Concomitant]
     Active Substance: PIROXICAM
     Indication: Nasopharyngitis
     Dosage: UNK
     Dates: start: 20231203, end: 20231206
  14. ACETAMINOPHEN [Concomitant]
     Active Substance: ACETAMINOPHEN
     Dosage: UNK
     Dates: start: 20231203, end: 20231206
  15. FINASTERIDE [Concomitant]
     Active Substance: FINASTERIDE
     Indication: Alopecia
     Dosage: UNK
     Route: 048
  16. ESCITALOPRAM OXALATE [Concomitant]
     Active Substance: ESCITALOPRAM OXALATE
     Indication: Anxiety
     Dosage: UNK
     Route: 048
  17. PSYLLIUM WHOLE HUSKS [Concomitant]
     Dosage: UNK UNK, DAILY
     Route: 048
  18. FLUTICASONA [FLUTICASONE] [Concomitant]
     Indication: Respiratory disorder
     Dosage: UNK (AS NEEDED)
     Route: 055
     Dates: start: 20231215, end: 20240102
  19. ALBUTEROL [Concomitant]
     Active Substance: ALBUTEROL
     Indication: Respiratory disorder
     Dosage: AS NEEDED
     Route: 055
     Dates: start: 20231215, end: 20240102
  20. ALBUTEROL [Concomitant]
     Active Substance: ALBUTEROL
     Dosage: AS NEEDED
     Route: 055
  21. MENTHOL [Concomitant]
     Active Substance: MENTHOL
     Indication: Cough
     Dosage: WHEN SICK
  22. MENTHOL [Concomitant]
     Active Substance: MENTHOL
     Indication: Nasopharyngitis
  23. MUCINEX D [Concomitant]
     Active Substance: GUAIFENESIN\PSEUDOEPHEDRINE HYDROCHLORIDE
     Dosage: UNK
     Dates: start: 20231204, end: 20231206

REACTIONS (2)
  - Cough [Recovered/Resolved]
  - Nasal congestion [Recovered/Resolved]

NARRATIVE: CASE EVENT DATE: 20231223
